FAERS Safety Report 10095890 (Version 2)
Quarter: 2014Q2

REPORT INFORMATION
  Report Type: Spontaneous
  Country: US (occurrence: US)
  Receive Date: 20140422
  Receipt Date: 20140422
  Transmission Date: 20141212
  Serious: No
  Sender: FDA-Public Use
  Company Number: US-GILEAD-2013-0073666

PATIENT
  Sex: Female

DRUGS (3)
  1. LETAIRIS [Suspect]
     Indication: PRODUCT USED FOR UNKNOWN INDICATION
     Dosage: 5 MG, QD
     Route: 048
     Dates: start: 20110930
  2. REVATIO [Concomitant]
  3. WARFARIN [Concomitant]

REACTIONS (3)
  - Neck pain [Unknown]
  - Back pain [Unknown]
  - Arthritis [Unknown]
